FAERS Safety Report 5786012-4 (Version None)
Quarter: 2008Q2

REPORT INFORMATION
  Report Type: 
  Country: None (occurrence: None)
  Receive Date: 20080624
  Receipt Date: 20080624
  Transmission Date: 20081010
  Serious: Yes (Hospitalization)
  Sender: FDA-Public Use
  Company Number: PHHO2007DE00660

PATIENT
  Sex: Male
  Weight: 123 kg

DRUGS (3)
  1. SPH100 SPH+TAB [Suspect]
     Indication: ESSENTIAL HYPERTENSION
     Dosage: 300/12.5MG QD
     Route: 048
     Dates: start: 20061120, end: 20070104
  2. ALISKIREN [Suspect]
     Indication: ESSENTIAL HYPERTENSION
     Route: 048
  3. MARCUMAR [Concomitant]

REACTIONS (6)
  - BRAIN STEM ISCHAEMIA [None]
  - BRAIN STEM SYNDROME [None]
  - HYPOAESTHESIA [None]
  - VERTIGO [None]
  - VISUAL ACUITY REDUCED [None]
  - VOMITING [None]
